FAERS Safety Report 21679916 (Version 1)
Quarter: 2022Q4

REPORT INFORMATION
  Report Type: Spontaneous
  Country: TH (occurrence: TH)
  Receive Date: 20221205
  Receipt Date: 20221205
  Transmission Date: 20230112
  Serious: Yes (Other)
  Sender: FDA-Public Use
  Company Number: TH-SUN PHARMACEUTICAL INDUSTRIES LTD-2022R1-366216

PATIENT
  Age: 39 Year
  Sex: Male

DRUGS (7)
  1. SULFAMETHOXAZOLE\TRIMETHOPRIM [Suspect]
     Active Substance: SULFAMETHOXAZOLE\TRIMETHOPRIM
     Indication: Acquired immunodeficiency syndrome
     Route: 065
  2. ADAPALENE\CLINDAMYCIN PHOSPHATE [Suspect]
     Active Substance: ADAPALENE\CLINDAMYCIN PHOSPHATE
     Dosage: 20 MG
     Route: 065
  3. ADAPALENE\CLINDAMYCIN PHOSPHATE [Suspect]
     Active Substance: ADAPALENE\CLINDAMYCIN PHOSPHATE
     Indication: Acquired immunodeficiency syndrome
  4. ADAPALENE\CLINDAMYCIN PHOSPHATE [Suspect]
     Active Substance: ADAPALENE\CLINDAMYCIN PHOSPHATE
  5. COTRIMOXAZOLE [Suspect]
     Active Substance: SULFAMETHOXAZOLE\TRIMETHOPRIM
     Route: 065
  6. COTRIMOXAZOLE [Suspect]
     Active Substance: SULFAMETHOXAZOLE\TRIMETHOPRIM
     Indication: Acquired immunodeficiency syndrome
  7. COTRIMOXAZOLE [Suspect]
     Active Substance: SULFAMETHOXAZOLE\TRIMETHOPRIM

REACTIONS (3)
  - Drug reaction with eosinophilia and systemic symptoms [Unknown]
  - Conjunctivitis [Unknown]
  - Rash maculo-papular [Unknown]
